FAERS Safety Report 21668218 (Version 4)
Quarter: 2023Q2

REPORT INFORMATION
  Report Type: Spontaneous
  Country: DE (occurrence: DE)
  Receive Date: 20221201
  Receipt Date: 20230525
  Transmission Date: 20230721
  Serious: Yes (Death)
  Sender: FDA-Public Use
  Company Number: DE-002147023-NVSC2022DE278616

PATIENT
  Sex: Male
  Weight: 88 kg

DRUGS (2)
  1. DABRAFENIB [Suspect]
     Active Substance: DABRAFENIB
     Indication: Non-small cell lung cancer
     Dosage: 75 MG, BID (2 TABLETS OF 75 MG, 2-0-2)
     Route: 048
     Dates: start: 20220919, end: 20221004
  2. TRAMETINIB [Suspect]
     Active Substance: TRAMETINIB
     Indication: Non-small cell lung cancer
     Dosage: 2 MG, QD (1-0-0)
     Route: 048
     Dates: start: 20220919, end: 20221004

REACTIONS (3)
  - Micturition disorder [Fatal]
  - Circulatory collapse [Fatal]
  - Pulmonary embolism [Fatal]
